FAERS Safety Report 20079940 (Version 1)
Quarter: 2021Q4

REPORT INFORMATION
  Report Type: Report from Study
  Country: FR (occurrence: FR)
  Receive Date: 20211117
  Receipt Date: 20211117
  Transmission Date: 20220303
  Serious: Yes (Hospitalization)
  Sender: FDA-Public Use
  Company Number: FR-SERVIER-S21012710

PATIENT

DRUGS (6)
  1. PEGASPARGASE [Suspect]
     Active Substance: PEGASPARGASE
     Indication: Acute lymphocytic leukaemia
     Dosage: 1675 IU, D8 AND D36
     Route: 042
     Dates: start: 20210323
  2. TN UNSPECIFIED [Concomitant]
     Indication: Acute lymphocytic leukaemia
     Dosage: 1 MG, D1, D8 AND D29
     Route: 042
     Dates: start: 20210318
  3. TN UNSPECIFIED [Concomitant]
     Indication: Acute lymphocytic leukaemia
     Dosage: 4 MG, D1 TO D5, D29 TO D33
     Route: 048
     Dates: start: 20210318
  4. TN UNSPECIFIED [Concomitant]
     Indication: Acute lymphocytic leukaemia
     Dosage: 33.5 MG, D1 TO D21
     Route: 048
     Dates: start: 20210318
  5. TN UNSPECIFIED [Concomitant]
     Indication: Acute lymphocytic leukaemia
     Dosage: 10 MG, ON D2 AND D30
     Route: 037
     Dates: start: 20210319
  6. TN UNSPECIFIED [Concomitant]
     Dosage: 16.7 MG, D8, D15 AND D22
     Route: 048
     Dates: start: 20210325

REACTIONS (1)
  - Escherichia pyelonephritis [Recovered/Resolved]

NARRATIVE: CASE EVENT DATE: 20210415
